FAERS Safety Report 16862749 (Version 1)
Quarter: 2019Q3

REPORT INFORMATION
  Report Type: Report from Study
  Country: IT (occurrence: IT)
  Receive Date: 20190927
  Receipt Date: 20190927
  Transmission Date: 20191005
  Serious: Yes (Other)
  Sender: FDA-Public Use
  Company Number: IT-MYLANLABS-2019M1089571

PATIENT
  Age: 57 Year
  Sex: Female
  Weight: 60 kg

DRUGS (9)
  1. ZOFRAN [Concomitant]
     Active Substance: ONDANSETRON HYDROCHLORIDE
     Dosage: ONGOING = CHECKED
     Route: 065
     Dates: start: 20180913
  2. DESAMETASONE [Concomitant]
     Active Substance: DEXAMETHASONE
     Dosage: ONGOING = CHECKED
     Route: 065
     Dates: start: 20180816
  3. TAXOTERE [Suspect]
     Active Substance: DOCETAXEL
     Indication: BREAST CANCER
     Dosage: 75 MILLIGRAM/SQ. METER, Q3W
     Route: 042
     Dates: start: 20180817
  4. DESAMETASONE [Concomitant]
     Active Substance: DEXAMETHASONE
     Dosage: ONGOING = CHECKED
     Route: 065
     Dates: start: 20180913
  5. ONDANSETRON [Concomitant]
     Active Substance: ONDANSETRON
     Dosage: ONGOING = CHECKED
     Route: 065
     Dates: start: 20180817
  6. CLORFENAMINA                       /00072501/ [Concomitant]
     Dosage: ONGOING = CHECKED
     Route: 065
     Dates: start: 20180816
  7. TRASTUZUMAB. [Suspect]
     Active Substance: TRASTUZUMAB
     Indication: BREAST CANCER
     Dosage: 480 MILLIGRAM, Q3W
     Route: 041
     Dates: start: 20180817, end: 20180913
  8. PARACETAMOLO [Concomitant]
     Active Substance: ACETAMINOPHEN
     Dosage: ONGOING = CHECKED
     Route: 065
     Dates: start: 20180816
  9. PERTUZUMAB. [Suspect]
     Active Substance: PERTUZUMAB
     Indication: BREAST CANCER
     Dosage: 840 MILLIGRAM, Q3W
     Route: 042
     Dates: start: 20180816, end: 20180913

REACTIONS (1)
  - Ventricular hypokinesia [Not Recovered/Not Resolved]

NARRATIVE: CASE EVENT DATE: 20190423
